FAERS Safety Report 9868847 (Version 1)
Quarter: 2014Q1

REPORT INFORMATION
  Report Type: Spontaneous
  Country: TW (occurrence: TW)
  Receive Date: 20140204
  Receipt Date: 20140204
  Transmission Date: 20141002
  Serious: Yes (Death)
  Sender: FDA-Public Use
  Company Number: TW-SPECTRUM PHARMACEUTICALS, INC.-14-F-TW-00016

PATIENT
  Age: 80 Year
  Sex: Male
  Weight: 59.4 kg

DRUGS (4)
  1. FLUOROURACIL [Suspect]
     Indication: COLON CANCER METASTATIC
     Dosage: UNK
     Route: 042
     Dates: start: 20120605, end: 20120607
  2. IRINOTECAN [Suspect]
     Indication: COLON CANCER METASTATIC
     Dosage: 236 MG, SINGLE
     Route: 042
     Dates: start: 20120605, end: 20120607
  3. FOLINIC ACID [Suspect]
     Indication: COLON CANCER METASTATIC
     Dosage: UNK
     Route: 042
     Dates: start: 20120605, end: 20120607
  4. BEVACIZUMAB [Suspect]
     Indication: COLON CANCER METASTATIC
     Dosage: 300 MG, SINGLE
     Route: 042
     Dates: start: 20120605, end: 20120607

REACTIONS (1)
  - Tumour lysis syndrome [Fatal]
